FAERS Safety Report 7810725-3 (Version None)
Quarter: 2011Q4

REPORT INFORMATION
  Report Type: 
  Country: None (occurrence: None)
  Receive Date: 20111006
  Receipt Date: 20110924
  Transmission Date: 20120403
  Serious: Yes (Other)
  Sender: FDA-Public Use
  Company Number: 2011AP002179

PATIENT
  Age: 55 Year
  Sex: Female

DRUGS (7)
  1. CITALOPRAM HYDROBROMIDE [Suspect]
     Indication: ASTHENIA
     Dosage: 10 MG;AM;
  2. CITALOPRAM HYDROBROMIDE [Suspect]
     Indication: ANHEDONIA
     Dosage: 10 MG;AM;
  3. CITALOPRAM HYDROBROMIDE [Suspect]
     Indication: DYSPHORIA
     Dosage: 10 MG;AM;
  4. ESCITALOPRAM [Suspect]
     Indication: DYSPHORIA
     Dosage: 10 MG;AM
  5. ESCITALOPRAM [Suspect]
     Indication: ASTHENIA
     Dosage: 10 MG;AM
  6. ESCITALOPRAM [Suspect]
     Indication: ANHEDONIA
     Dosage: 10 MG;AM
  7. VITAMINS WITH MINERALS [Concomitant]

REACTIONS (5)
  - GASTROOESOPHAGEAL REFLUX DISEASE [None]
  - HEADACHE [None]
  - SALIVARY HYPERSECRETION [None]
  - NAUSEA [None]
  - COUGH [None]
